FAERS Safety Report 7929033-5 (Version None)
Quarter: 2011Q4

REPORT INFORMATION
  Report Type: 
  Country: None (occurrence: None)
  Receive Date: 20111118
  Receipt Date: 20111028
  Transmission Date: 20120403
  Serious: Yes (Hospitalization)
  Sender: FDA-Public Use
  Company Number: GB-ROCHE-1003819

PATIENT
  Age: 62 Year
  Sex: Female
  Weight: 48.4 kg

DRUGS (6)
  1. BENDROFLUMETHIAZIDE [Concomitant]
     Dates: start: 19980101
  2. PRED FORTE [Concomitant]
     Dates: start: 20111003
  3. ESTRADIOL VALERATE [Concomitant]
     Dates: start: 19980101
  4. LOSARTAN [Concomitant]
     Dates: start: 19980101
  5. VEMURAFENIB [Suspect]
     Indication: MALIGNANT MELANOMA
     Dosage: LAST DOSE PRIOR SAE WAS ON 02/OCT/2011
     Route: 048
     Dates: start: 20110927
  6. DICLOFENAC SODIUM [Concomitant]
     Dates: start: 20111003

REACTIONS (1)
  - BACK PAIN [None]
